FAERS Safety Report 4682879-1 (Version None)
Quarter: 2005Q2

REPORT INFORMATION
  Report Type: 
  Country: None (occurrence: None)
  Receive Date: 20050531
  Receipt Date: 20041129
  Transmission Date: 20051028
  Serious: Yes (Death)
  Sender: FDA-Public Use
  Company Number: 200419127US

PATIENT
  Age: 67 Year
  Sex: Female

DRUGS (6)
  1. LOVENOX [Suspect]
     Dates: start: 20040801
  2. TRACLEER [Suspect]
     Indication: PULMONARY HYPERTENSION
     Dosage: 125 MG BID PO
     Route: 048
     Dates: start: 20040701
  3. TRACLEER [Suspect]
     Indication: PULMONARY HYPERTENSION
     Dosage: 62.5 MG BID PO
     Route: 048
     Dates: start: 20040601, end: 20040701
  4. DEXAMETHASONE [Concomitant]
  5. ELAVIL [Concomitant]
  6. VANCOMYCIN [Concomitant]

REACTIONS (1)
  - GASTROINTESTINAL HAEMORRHAGE [None]
